FAERS Safety Report 4712302-X (Version None)
Quarter: 2005Q3

REPORT INFORMATION
  Report Type: 
  Country: None (occurrence: None)
  Receive Date: 20050711
  Receipt Date: 20050623
  Transmission Date: 20060218
  Serious: Yes (Other)
  Sender: FDA-Public Use
  Company Number: 215575

PATIENT
  Age: 47 Year
  Sex: Female
  Weight: 53 kg

DRUGS (10)
  1. RITUXAN [Suspect]
     Indication: NON-HODGKIN'S LYMPHOMA
     Dosage: 500 MG, INTRAVENOUS
     Route: 042
     Dates: start: 20010907, end: 20010907
  2. RITUXAN [Suspect]
     Indication: NON-HODGKIN'S LYMPHOMA
     Dosage: 500 MG, INTRAVENOUS
     Route: 042
     Dates: start: 20010914, end: 20010914
  3. RITUXAN [Suspect]
     Indication: NON-HODGKIN'S LYMPHOMA
     Dosage: 500 MG, INTRAVENOUS
     Route: 042
     Dates: start: 20010921, end: 20010921
  4. RITUXAN [Suspect]
     Indication: NON-HODGKIN'S LYMPHOMA
     Dosage: 500 MG, INTRAVENOUS
     Route: 042
     Dates: start: 20010928, end: 20010928
  5. CYCLOPHOSPHAMIDE [Concomitant]
  6. DOXORUBICIN HYDROCHLORIDE [Concomitant]
  7. ONCOVIN [Concomitant]
  8. PREDNISONE [Concomitant]
  9. LOXONIN (LOXOPROFEN SODIUM) [Concomitant]
  10. VENA (DIPHENHYDRAMINE HYDROCHLORIDE) [Concomitant]

REACTIONS (1)
  - NEUTROPHIL COUNT DECREASED [None]
